FAERS Safety Report 7572468-3 (Version None)
Quarter: 2011Q2

REPORT INFORMATION
  Report Type: 
  Country: None (occurrence: None)
  Receive Date: 20110624
  Receipt Date: 20110607
  Transmission Date: 20111010
  Serious: Yes (Other)
  Sender: FDA-Public Use
  Company Number: DE-GENENTECH-320565

PATIENT
  Sex: Male

DRUGS (1)
  1. XOLAIR [Suspect]
     Indication: HYPERSENSITIVITY
     Dosage: UNK
     Dates: start: 20110201

REACTIONS (3)
  - C-REACTIVE PROTEIN INCREASED [None]
  - RHEUMATOID FACTOR INCREASED [None]
  - ARTHRALGIA [None]
